FAERS Safety Report 5054083-9 (Version None)
Quarter: 2006Q3

REPORT INFORMATION
  Report Type: 
  Country: None (occurrence: None)
  Receive Date: 20060713
  Receipt Date: 20060626
  Transmission Date: 20061208
  Serious: Yes (Other)
  Sender: FDA-Public Use
  Company Number: 2006JP001905

PATIENT
  Age: 17 Year
  Sex: Male

DRUGS (1)
  1. PROTOPIC [Suspect]
     Indication: DERMATITIS ATOPIC
     Dosage: TOPICAL
     Route: 061

REACTIONS (1)
  - LYMPHOMA [None]
